FAERS Safety Report 19607088 (Version 1)
Quarter: 2021Q3

REPORT INFORMATION
  Report Type: Spontaneous
  Country: US (occurrence: US)
  Receive Date: 20210726
  Receipt Date: 20210726
  Transmission Date: 20211014
  Serious: Yes (Death, Hospitalization, Other)
  Sender: FDA-Public Use
  Company Number: US-AUROBINDO-AUR-APL-2021-030516

PATIENT
  Age: 10 Year
  Sex: Female

DRUGS (1)
  1. METHADONE [Suspect]
     Active Substance: METHADONE HYDROCHLORIDE
     Indication: PRODUCT USED FOR UNKNOWN INDICATION
     Dosage: UNK
     Route: 048

REACTIONS (10)
  - Unresponsive to stimuli [Fatal]
  - Brain injury [Fatal]
  - Medication error [Fatal]
  - Brain oedema [Fatal]
  - Cardiac arrest [Fatal]
  - Toxicity to various agents [Fatal]
  - Cerebral ischaemia [Fatal]
  - Diabetes insipidus [Fatal]
  - Acute respiratory distress syndrome [Fatal]
  - Respiratory arrest [Fatal]
